FAERS Safety Report 4784475-4 (Version None)
Quarter: 2005Q3

REPORT INFORMATION
  Report Type: 
  Country: None (occurrence: None)
  Receive Date: 20050930
  Receipt Date: 20050924
  Transmission Date: 20060218
  Serious: Yes (Death, Hospitalization)
  Sender: FDA-Public Use
  Company Number: GB-JNJFOC-20050901813

PATIENT
  Age: 6 Year
  Sex: Female

DRUGS (11)
  1. CISAPRIDE [Suspect]
     Indication: GASTROOESOPHAGEAL REFLUX DISEASE
     Route: 065
  2. AMITRIPTYLINE HCL [Suspect]
     Route: 065
  3. AMITRIPTYLINE HCL [Suspect]
     Route: 065
  4. AMITRIPTYLINE HCL [Suspect]
     Indication: EPIDERMOLYSIS BULLOSA
     Route: 065
  5. AMITRIPTYLINE HCL [Suspect]
     Route: 065
  6. SELENIUM SULFIDE [Concomitant]
     Indication: SELENIUM DEFICIENCY
     Route: 065
  7. CARNITINE [Concomitant]
     Indication: CARNITINE DEFICIENCY
     Route: 065
  8. FOLIC ACID [Concomitant]
     Indication: ANAEMIA
     Route: 065
  9. IRON [Concomitant]
     Indication: ANAEMIA
     Route: 065
  10. RANITIDINE [Concomitant]
     Route: 065
  11. ACETAMINOPHEN [Concomitant]
     Route: 065

REACTIONS (3)
  - CONGESTIVE CARDIOMYOPATHY [None]
  - MYOCARDITIS [None]
  - THERAPEUTIC AGENT TOXICITY [None]
